FAERS Safety Report 7722736-7 (Version None)
Quarter: 2011Q3

REPORT INFORMATION
  Report Type: 
  Country: None (occurrence: None)
  Receive Date: 20110831
  Receipt Date: 20110818
  Transmission Date: 20111222
  Serious: No
  Sender: FDA-Public Use
  Company Number: US-B.I. PHARMACEUTICALS,INC./RIDGEFIELD-2011-BP-08497BP

PATIENT
  Sex: Female

DRUGS (10)
  1. VITAMIN D [Concomitant]
     Indication: OSTEOPOROSIS
  2. LEVOXYL [Concomitant]
     Indication: HYPOTHYROIDISM
     Dosage: 75 MG
  3. CALCIUM CARBONATE [Concomitant]
     Indication: OSTEOPOROSIS
  4. PRADAXA [Suspect]
     Indication: TRANSIENT ISCHAEMIC ATTACK
  5. LUMIGAN [Concomitant]
     Indication: GLAUCOMA
     Route: 031
  6. MAGNESIUM [Concomitant]
     Indication: OSTEOPOROSIS
  7. DILTIAZEM [Concomitant]
     Indication: ATRIAL FIBRILLATION
  8. DILTIAZEM [Concomitant]
     Indication: HEART RATE IRREGULAR
     Dosage: 120 MG
  9. PRADAXA [Suspect]
     Indication: ATRIAL FIBRILLATION
     Dosage: 300 MG
     Route: 048
     Dates: start: 20110218, end: 20110801
  10. PRADAXA [Suspect]
     Indication: HEART RATE IRREGULAR

REACTIONS (3)
  - PAIN IN EXTREMITY [None]
  - OEDEMA PERIPHERAL [None]
  - BLOOD URINE PRESENT [None]
